FAERS Safety Report 7744593-5 (Version None)
Quarter: 2011Q3

REPORT INFORMATION
  Report Type: 
  Country: None (occurrence: None)
  Receive Date: 20110912
  Receipt Date: 20110830
  Transmission Date: 20111222
  Serious: Yes (Other)
  Sender: FDA-Public Use
  Company Number: PL-GENENTECH-323835

PATIENT
  Sex: Male
  Weight: 67.6 kg

DRUGS (3)
  1. MABTHERA [Suspect]
     Indication: DIFFUSE LARGE B-CELL LYMPHOMA
     Dosage: 600 MG, UNK
     Route: 042
     Dates: start: 20110829, end: 20110829
  2. ACETAMINOPHEN [Concomitant]
     Indication: PREMEDICATION
     Dosage: 500 MG, X2
     Dates: start: 20110829, end: 20110829
  3. CLEMASTIN [Concomitant]
     Indication: PREMEDICATION
     Dosage: 1 AMP, UNK
     Dates: start: 20110829, end: 20110829

REACTIONS (2)
  - HYPOTONIA [None]
  - CHILLS [None]
